FAERS Safety Report 10197047 (Version 2)
Quarter: 2014Q2

REPORT INFORMATION
  Report Type: Spontaneous
  Country: US (occurrence: US)
  Receive Date: 20140527
  Receipt Date: 20140527
  Transmission Date: 20141212
  Serious: Yes (Other)
  Sender: FDA-Public Use
  Company Number: US-MALLINCKRODT-T201402264

PATIENT
  Sex: Male
  Weight: 72.5 kg

DRUGS (5)
  1. FENTANYL TRANSDERMAL SYSTEM [Suspect]
     Indication: MYOFASCIAL PAIN SYNDROME
     Dosage: 50 UG/HR, Q 3 DAYS
     Route: 062
     Dates: start: 2013, end: 2013
  2. VALIUM [Concomitant]
     Indication: ANXIETY
     Dosage: 5 MG, TID PRN
     Route: 048
  3. VALIUM [Concomitant]
     Indication: MUSCLE SPASMS
  4. VALIUM [Concomitant]
     Indication: INSOMNIA
  5. FENTANYL [Concomitant]
     Dosage: UNK

REACTIONS (4)
  - Haematemesis [Recovered/Resolved]
  - Dysarthria [Recovered/Resolved]
  - Nausea [Recovered/Resolved]
  - Vertigo [Recovered/Resolved]
